FAERS Safety Report 10922777 (Version 1)
Quarter: 2015Q1

REPORT INFORMATION
  Report Type: Spontaneous
  Country: US (occurrence: None)
  Receive Date: 20150313
  Receipt Date: 20150313
  Transmission Date: 20150721
  Serious: Yes (Hospitalization)
  Sender: FDA-Public Use
  Company Number: FK201501195

PATIENT
  Age: 61 Year
  Sex: Male

DRUGS (4)
  1. OXALIPLATIN. [Suspect]
     Active Substance: OXALIPLATIN
     Indication: ADENOCARCINOMA OF COLON
  2. CALCIUM LEUCOVORIN (CALCIUM FOLINATE) [Concomitant]
  3. BEVACIZUMAB [Concomitant]
     Active Substance: BEVACIZUMAB
  4. FLUOROURACIL. [Concomitant]
     Active Substance: FLUOROURACIL

REACTIONS (6)
  - Acute kidney injury [None]
  - Haemolysis [None]
  - Gingival bleeding [None]
  - Metabolic acidosis [None]
  - Leukaemoid reaction [None]
  - Disseminated intravascular coagulation [None]
